FAERS Safety Report 19940433 (Version 1)
Quarter: 2021Q4

REPORT INFORMATION
  Report Type: Spontaneous
  Country: US (occurrence: US)
  Receive Date: 20211011
  Receipt Date: 20211011
  Transmission Date: 20220303
  Serious: Yes (Other)
  Sender: FDA-Public Use
  Company Number: US-GLAXOSMITHKLINE-US2021GSK209973

PATIENT
  Sex: Male

DRUGS (2)
  1. RANITIDINE [Suspect]
     Active Substance: RANITIDINE
     Indication: Surgery
     Dosage: 150 MG, QD
     Route: 065
     Dates: start: 200507, end: 202012
  2. RANITIDINE [Suspect]
     Active Substance: RANITIDINE
     Indication: Surgery
     Dosage: 150 MG, QD
     Route: 065
     Dates: start: 200507, end: 202012

REACTIONS (1)
  - Prostate cancer [Unknown]
